FAERS Safety Report 20802449 (Version 1)
Quarter: 2022Q2

REPORT INFORMATION
  Report Type: Spontaneous
  Country: US (occurrence: None)
  Receive Date: 20220509
  Receipt Date: 20220509
  Transmission Date: 20220721
  Serious: Yes (Hospitalization)
  Sender: FDA-Public Use
  Company Number: None

PATIENT
  Age: 53 Year
  Sex: Female
  Weight: 75.3 kg

DRUGS (10)
  1. CAPECITABINE [Suspect]
     Active Substance: CAPECITABINE
     Indication: Rectal cancer
     Dosage: FREQUENCY : TWICE A DAY;?
     Route: 048
     Dates: start: 202112, end: 20220507
  2. CAPECITABINE [Suspect]
     Active Substance: CAPECITABINE
     Dates: start: 202112, end: 20220507
  3. ATORVASTATIN [Concomitant]
     Active Substance: ATORVASTATIN
  4. INSULIN GLARGINE [Concomitant]
     Active Substance: INSULIN GLARGINE
  5. INSULIN NOS [Concomitant]
     Active Substance: INSULIN NOS
  6. INSULIN LISPRO [Concomitant]
     Active Substance: INSULIN LISPRO
  7. LISINOPRIL [Concomitant]
     Active Substance: LISINOPRIL
  8. METFORMIN [Concomitant]
     Active Substance: METFORMIN HYDROCHLORIDE
  9. OXYCODONE [Concomitant]
     Active Substance: OXYCODONE
  10. PAROXETINE [Concomitant]
     Active Substance: PAROXETINE

REACTIONS (1)
  - Gallbladder operation [None]

NARRATIVE: CASE EVENT DATE: 20220508
